FAERS Safety Report 8600055-4 (Version None)
Quarter: 2012Q3

REPORT INFORMATION
  Report Type: 
  Country: None (occurrence: None)
  Receive Date: 20120816
  Receipt Date: 20111028
  Transmission Date: 20120928
  Serious: Yes (Other)
  Sender: FDA-Public Use
  Company Number: PHEH2011US013200

PATIENT
  Sex: Female

DRUGS (2)
  1. NORVASC [Concomitant]
     Dosage: UNK UKN, QD
  2. DIOVAN HCT [Suspect]
     Dosage: 1 DF (320/25 MG), QD

REACTIONS (4)
  - DRUG INEFFECTIVE [None]
  - FEELING COLD [None]
  - FEELING ABNORMAL [None]
  - DEAFNESS [None]
